FAERS Safety Report 8326889-1 (Version None)
Quarter: 2012Q2

REPORT INFORMATION
  Report Type: 
  Country: None (occurrence: None)
  Receive Date: 20120501
  Receipt Date: 20120416
  Transmission Date: 20120825
  Serious: Yes (Other)
  Sender: FDA-Public Use
  Company Number: TR-WATSON-2012-06696

PATIENT
  Sex: Male

DRUGS (2)
  1. PHENYTOIN [Suspect]
     Indication: FOETAL EXPOSURE DURING PREGNANCY
     Dosage: UNK MG, DAILY
     Route: 064
  2. VALPROATE SODIUM [Suspect]
     Indication: FOETAL EXPOSURE DURING PREGNANCY
     Dosage: UNK MG, DAILY
     Route: 064

REACTIONS (19)
  - BRADYCARDIA [None]
  - HYPOGLYCAEMIA NEONATAL [None]
  - PLATELET COUNT DECREASED [None]
  - PREMATURE BABY [None]
  - WHITE BLOOD CELL COUNT INCREASED [None]
  - BLOOD LACTATE DEHYDROGENASE INCREASED [None]
  - AGITATION NEONATAL [None]
  - HYPOTONIA NEONATAL [None]
  - DYSPNOEA [None]
  - BRADYCARDIA NEONATAL [None]
  - HAEMOGLOBIN INCREASED [None]
  - HYPOGLYCAEMIA [None]
  - ASPARTATE AMINOTRANSFERASE INCREASED [None]
  - BLOOD CREATINE PHOSPHOKINASE MB INCREASED [None]
  - NEONATAL RESPIRATORY FAILURE [None]
  - CAESAREAN SECTION [None]
  - DRUG WITHDRAWAL SYNDROME NEONATAL [None]
  - BLOOD CREATINE PHOSPHOKINASE INCREASED [None]
  - MATERNAL DRUGS AFFECTING FOETUS [None]
